FAERS Safety Report 4850401-2 (Version None)
Quarter: 2005Q4

REPORT INFORMATION
  Report Type: 
  Country: None (occurrence: None)
  Receive Date: 20051123
  Receipt Date: 20050927
  Transmission Date: 20060501
  Serious: No
  Sender: FDA-Public Use
  Company Number: TPA2005A01139

PATIENT
  Sex: Female

DRUGS (1)
  1. ROZEREM [Suspect]
     Indication: SLEEP DISORDER
     Dosage: 8 MG, HS, PER ORAL
     Route: 048

REACTIONS (2)
  - MIDDLE INSOMNIA [None]
  - NIGHTMARE [None]
